FAERS Safety Report 24551930 (Version 2)
Quarter: 2024Q4

REPORT INFORMATION
  Report Type: Spontaneous
  Country: GB (occurrence: GB)
  Receive Date: 20241026
  Receipt Date: 20241121
  Transmission Date: 20250115
  Serious: Yes (Other)
  Sender: ABBVIE
  Company Number: GB-TAKEDA-2024TUS106593

PATIENT
  Sex: Male

DRUGS (2)
  1. LUPRON DEPOT [Suspect]
     Active Substance: LEUPROLIDE ACETATE
     Indication: Prostate cancer
     Dosage: TIME INTERVAL: 0.33333333 MONTHS
     Route: 065
     Dates: start: 202407
  2. LUPRON DEPOT [Suspect]
     Active Substance: LEUPROLIDE ACETATE

REACTIONS (6)
  - Renal impairment [Unknown]
  - Hyperglycaemia [Unknown]
  - Diabetes mellitus [Unknown]
  - Glomerular filtration rate abnormal [Unknown]
  - Hyperkalaemia [Unknown]
  - Blood creatinine abnormal [Unknown]
